FAERS Safety Report 20031898 (Version 1)
Quarter: 2021Q4

REPORT INFORMATION
  Report Type: Report from Study
  Country: PR (occurrence: PR)
  Receive Date: 20211103
  Receipt Date: 20211103
  Transmission Date: 20220303
  Serious: Yes (Death, Hospitalization)
  Sender: FDA-Public Use
  Company Number: PR-ABBVIE-21K-131-4142800-00

PATIENT
  Age: 76 Year
  Sex: Female
  Weight: 45.854 kg

DRUGS (1)
  1. VENCLEXTA [Suspect]
     Active Substance: VENETOCLAX
     Indication: Acute myeloid leukaemia
     Route: 048
     Dates: start: 20210805, end: 20211018

REACTIONS (1)
  - Death [Fatal]

NARRATIVE: CASE EVENT DATE: 20211018
